FAERS Safety Report 20558252 (Version 1)
Quarter: 2022Q1

REPORT INFORMATION
  Report Type: Spontaneous
  Country: JP (occurrence: JP)
  Receive Date: 20220307
  Receipt Date: 20220307
  Transmission Date: 20220423
  Serious: Yes (Hospitalization, Other)
  Sender: FDA-Public Use
  Company Number: JP-SAKK-2022SA066288AA

PATIENT
  Age: 17 Year
  Sex: Male
  Weight: 30 kg

DRUGS (1)
  1. NEXVIAZYME [Suspect]
     Active Substance: AVALGLUCOSIDASE ALFA-NGPT
     Indication: Product used for unknown indication
     Dosage: 12 V PER DAY
     Route: 041
     Dates: start: 20220105

REACTIONS (1)
  - Atrioventricular block complete [Unknown]
